FAERS Safety Report 23322957 (Version 1)
Quarter: 2023Q4

REPORT INFORMATION
  Report Type: Spontaneous
  Country: US (occurrence: None)
  Receive Date: 20231220
  Receipt Date: 20231220
  Transmission Date: 20240110
  Serious: No
  Sender: FDA-Public Use
  Company Number: US-ROCHE-3238880

PATIENT
  Age: 44 Year
  Sex: Female
  Weight: 119.5 kg

DRUGS (8)
  1. RITUXAN [Suspect]
     Active Substance: RITUXIMAB
     Indication: Anti-neutrophil cytoplasmic antibody positive vasculitis
     Route: 041
  2. BENADRYL (UNK COUNTRY) [Concomitant]
     Route: 048
     Dates: start: 20221207, end: 20221207
  3. BENADRYL (UNK COUNTRY) [Concomitant]
     Route: 042
     Dates: start: 20221207, end: 20221207
  4. BENADRYL (UNK COUNTRY) [Concomitant]
     Dosage: NO
     Route: 042
     Dates: start: 20221207, end: 20221207
  5. SOLU-CORTEF [Concomitant]
     Active Substance: HYDROCORTISONE SODIUM SUCCINATE
     Route: 042
     Dates: start: 20221207, end: 20221207
  6. SOLU-CORTEF [Concomitant]
     Active Substance: HYDROCORTISONE SODIUM SUCCINATE
     Route: 042
     Dates: start: 20221207, end: 20221207
  7. SODIUM CHLORIDE [Concomitant]
     Active Substance: SODIUM CHLORIDE
     Route: 042
     Dates: start: 20221207, end: 20221207
  8. TYLENOL [Concomitant]
     Active Substance: ACETAMINOPHEN
     Indication: Prophylaxis
     Route: 048
     Dates: start: 20221207, end: 20221207

REACTIONS (4)
  - Rash macular [Recovered/Resolved]
  - Swelling face [Recovered/Resolved]
  - Throat irritation [Recovered/Resolved]
  - Intentional product use issue [Unknown]

NARRATIVE: CASE EVENT DATE: 20221207
